FAERS Safety Report 19501992 (Version 1)
Quarter: 2021Q3

REPORT INFORMATION
  Report Type: Spontaneous
  Country: US (occurrence: US)
  Receive Date: 20210707
  Receipt Date: 20210707
  Transmission Date: 20211014
  Serious: Yes (Hospitalization)
  Sender: FDA-Public Use
  Company Number: None

PATIENT
  Sex: Female

DRUGS (12)
  1. FERROUS SULF [Concomitant]
     Active Substance: FERROUS SULFATE
  2. LEVOXYL [Concomitant]
     Active Substance: LEVOTHYROXINE SODIUM
  3. LORATADINE. [Concomitant]
     Active Substance: LORATADINE
  4. POT CL MICRO [Concomitant]
  5. REPATHA [Suspect]
     Active Substance: EVOLOCUMAB
     Indication: HYPERLIPIDAEMIA
     Dosage: OTHER FREQUENCY:Q2WKS;?
     Route: 058
  6. FUROSEMIDE. [Concomitant]
     Active Substance: FUROSEMIDE
  7. NITROGYLERN [Concomitant]
  8. VALSART/HCTZ [Concomitant]
     Active Substance: HYDROCHLOROTHIAZIDE\VALSARTAN
  9. DULOXETINE. [Concomitant]
     Active Substance: DULOXETINE
  10. LANSOPROZOLE [Concomitant]
     Active Substance: LANSOPRAZOLE
  11. METOPROLOL TARTRATE. [Concomitant]
     Active Substance: METOPROLOL TARTRATE
  12. POLY?IRON [Concomitant]
     Active Substance: IRON

REACTIONS (1)
  - Coronary artery bypass [None]
